FAERS Safety Report 14139326 (Version 1)
Quarter: 2017Q4

REPORT INFORMATION
  Report Type: Spontaneous
  Country: US (occurrence: US)
  Receive Date: 20171028
  Receipt Date: 20171028
  Transmission Date: 20180321
  Serious: No
  Sender: FDA-Public Use
  Company Number: US-009507513-1709USA013095

PATIENT
  Age: 67 Year
  Sex: Male

DRUGS (4)
  1. ZOSTAVAX [Suspect]
     Active Substance: VARICELLA-ZOSTER VIRUS STRAIN OKA/MERCK LIVE ANTIGEN
     Indication: PROPHYLAXIS
     Dosage: .65 ML
     Route: 030
     Dates: start: 20170926, end: 20170926
  2. FLUARIX QUADRIVALENT [Concomitant]
     Indication: PROPHYLAXIS
     Route: 030
     Dates: start: 20170925
  3. STERILE DILUENT [Suspect]
     Active Substance: WATER
     Dosage: UNK, LEFT ARM
     Route: 030
     Dates: start: 20170926, end: 20170926
  4. PREVNAR 13 [Concomitant]
     Active Substance: PNEUMOCOCCAL 13-VALENT CONJUGATE VACCINE
     Indication: PROPHYLAXIS
     Route: 030
     Dates: start: 20170926

REACTIONS (2)
  - Incorrect route of drug administration [Unknown]
  - No adverse event [Unknown]

NARRATIVE: CASE EVENT DATE: 20170926
